FAERS Safety Report 22002455 (Version 1)
Quarter: 2023Q1

REPORT INFORMATION
  Report Type: Spontaneous
  Country: KR (occurrence: KR)
  Receive Date: 20230217
  Receipt Date: 20230217
  Transmission Date: 20230418
  Serious: Yes (Hospitalization)
  Sender: FDA-Public Use
  Company Number: KR-UCBSA-2023007383

PATIENT
  Sex: Male
  Weight: 57.9 kg

DRUGS (8)
  1. KEPPRA [Suspect]
     Active Substance: LEVETIRACETAM
     Indication: Epilepsy
     Dosage: UNK, 2X/DAY (BID)
     Route: 048
     Dates: start: 20150910
  2. LACOSAMIDE [Suspect]
     Active Substance: LACOSAMIDE
     Indication: Product used for unknown indication
     Dosage: 0.5 DOSAGE FORM, 2X/DAY (BID)
     Dates: start: 20180705, end: 20181209
  3. PELUBIPROFEN [Suspect]
     Active Substance: PELUBIPROFEN
     Indication: Arthralgia
     Dosage: UNK, 2X/DAY (BID)
     Route: 048
     Dates: start: 20181025
  4. CLOPIDOGREL BISULFATE [Suspect]
     Active Substance: CLOPIDOGREL BISULFATE
     Indication: Hyperlipidaemia
     Dosage: UNK UNK, 2X/DAY (BID)
     Route: 048
     Dates: start: 20151224
  5. TRIMETAZIDINE DIHYDROCHLORIDE [Suspect]
     Active Substance: TRIMETAZIDINE DIHYDROCHLORIDE
     Indication: Angina pectoris
     Dosage: 35 MILLIGRAM, 2X/DAY (BID)
     Route: 048
     Dates: start: 20170417
  6. EZETIMIBE [Concomitant]
     Active Substance: EZETIMIBE
     Indication: Hyperlipidaemia
  7. ATORVASTATIN CALCIUM [Concomitant]
     Active Substance: ATORVASTATIN CALCIUM
     Indication: Hyperlipidaemia
  8. DULOXETINE HYDROCHLORIDE [Concomitant]
     Active Substance: DULOXETINE HYDROCHLORIDE
     Indication: Depression

REACTIONS (1)
  - Cerebral infarction [Recovered/Resolved]

NARRATIVE: CASE EVENT DATE: 20181119
